FAERS Safety Report 20391250 (Version 1)
Quarter: 2022Q1

REPORT INFORMATION
  Report Type: Spontaneous
  Country: US (occurrence: US)
  Receive Date: 20220128
  Receipt Date: 20220128
  Transmission Date: 20220423
  Serious: No
  Sender: FDA-Public Use
  Company Number: US-ALLERGAN-2139679US

PATIENT
  Age: 77 Year
  Sex: Female

DRUGS (1)
  1. FML [Suspect]
     Active Substance: FLUOROMETHOLONE
     Indication: Postoperative care

REACTIONS (3)
  - Ocular hyperaemia [Unknown]
  - Eye discharge [Unknown]
  - Liquid product physical issue [Unknown]
